FAERS Safety Report 22817708 (Version 10)
Quarter: 2024Q2

REPORT INFORMATION
  Report Type: Spontaneous
  Country: US (occurrence: US)
  Receive Date: 20230813
  Receipt Date: 20240627
  Transmission Date: 20240716
  Serious: Yes (Other)
  Sender: FDA-Public Use
  Company Number: US-BEH-2023162023

PATIENT
  Age: 60 Year
  Sex: Female

DRUGS (26)
  1. HIZENTRA [Suspect]
     Active Substance: HUMAN IMMUNOGLOBULIN G
     Indication: Asthma
     Dosage: 12 GRAM, QW
     Route: 058
     Dates: start: 20230802
  2. HIZENTRA [Suspect]
     Active Substance: HUMAN IMMUNOGLOBULIN G
     Indication: Selective IgG subclass deficiency
     Dosage: 12 GRAM, QW
     Route: 058
     Dates: start: 20230725
  3. ALBUTEROL [Concomitant]
     Active Substance: ALBUTEROL
     Dosage: 0.083 %
  4. ALLEGRA ALLERGY [Concomitant]
     Active Substance: FEXOFENADINE HYDROCHLORIDE
     Dosage: 180 MG
  5. BUDESONIDE [Concomitant]
     Active Substance: BUDESONIDE
     Dosage: 1 MG
  6. BUMETANIDE [Concomitant]
     Active Substance: BUMETANIDE
     Dosage: 1 MG
  7. CALCIUM [Concomitant]
     Active Substance: CALCIUM
     Dosage: 600 MG
  8. ELIQUIS [Concomitant]
     Active Substance: APIXABAN
     Dosage: 5 MG
  9. EPINEPHRINE [Concomitant]
     Active Substance: EPINEPHRINE
  10. FLONASE ALLERGY RELIEF [Concomitant]
     Active Substance: FLUTICASONE PROPIONATE
  11. FOLIC ACID [Concomitant]
     Active Substance: FOLIC ACID
  12. LIPITOR [Concomitant]
     Active Substance: ATORVASTATIN CALCIUM
     Dosage: 40 MG
  13. LYRICA [Concomitant]
     Active Substance: PREGABALIN
     Dosage: 75 MG
  14. METOPROLOL TARTRATE [Concomitant]
     Active Substance: METOPROLOL TARTRATE
     Dosage: 50 MG
  15. MIDODRINE [Concomitant]
     Active Substance: MIDODRINE
     Dosage: 5 MG
  16. MIRALAX [Concomitant]
     Active Substance: POLYETHYLENE GLYCOL 3350
     Dosage: 3350 UNK
  17. POTASSIUM CITRATE [Concomitant]
     Active Substance: POTASSIUM CITRATE
  18. PROTONIX [Concomitant]
     Active Substance: PANTOPRAZOLE SODIUM
     Dosage: 40 MG
  19. SINGULAIR [Concomitant]
     Active Substance: MONTELUKAST SODIUM
     Dosage: 10 MG
  20. TEZSPIRE [Concomitant]
     Active Substance: TEZEPELUMAB-EKKO
  21. VALTREX [Concomitant]
     Active Substance: VALACYCLOVIR HYDROCHLORIDE
     Dosage: 500 MG
  22. VITAMIN D NOS [Concomitant]
     Active Substance: CHOLECALCIFEROL\ERGOCALCIFEROL
     Dosage: 400 IU
  23. APAP [Concomitant]
     Active Substance: ACETAMINOPHEN
     Indication: Premedication
  24. BENADRYL [Concomitant]
     Active Substance: DIPHENHYDRAMINE HYDROCHLORIDE
     Indication: Premedication
  25. DEXAMETHASONE [Concomitant]
     Active Substance: DEXAMETHASONE
     Dosage: 4 MG
  26. FERAHEME [Concomitant]
     Active Substance: FERUMOXYTOL NON-STOICHIOMETRIC MAGNETITE

REACTIONS (18)
  - Atrioventricular block first degree [Not Recovered/Not Resolved]
  - Atrioventricular block second degree [Not Recovered/Not Resolved]
  - Injection site swelling [Recovering/Resolving]
  - Injection site pruritus [Recovering/Resolving]
  - Injection site erythema [Recovering/Resolving]
  - Injection site pain [Recovering/Resolving]
  - Off label use [Unknown]
  - Gastrointestinal disorder [Not Recovered/Not Resolved]
  - Flushing [Not Recovered/Not Resolved]
  - Abdominal distension [Not Recovered/Not Resolved]
  - Headache [Unknown]
  - Nasopharyngitis [Not Recovered/Not Resolved]
  - Abdominal pain [Not Recovered/Not Resolved]
  - Infusion site reaction [Not Recovered/Not Resolved]
  - Rash [Not Recovered/Not Resolved]
  - Product dose omission issue [Unknown]
  - Ill-defined disorder [Unknown]
  - Inappropriate schedule of product administration [Unknown]

NARRATIVE: CASE EVENT DATE: 20230802
